FAERS Safety Report 4616113-5 (Version None)
Quarter: 2005Q1

REPORT INFORMATION
  Report Type: 
  Country: None (occurrence: None)
  Receive Date: 20050323
  Receipt Date: 20050311
  Transmission Date: 20050727
  Serious: Yes (Other)
  Sender: FDA-Public Use
  Company Number: AU-NOVOPROD-242976

PATIENT
  Age: 68 Year
  Sex: Female

DRUGS (1)
  1. NOVOMIX 30 FLEXPEN [Suspect]
     Indication: DIABETES MELLITUS

REACTIONS (6)
  - CATARACT [None]
  - GLAUCOMA [None]
  - HAEMORRHAGE [None]
  - LEG AMPUTATION [None]
  - MYOCARDIAL INFARCTION [None]
  - WEIGHT INCREASED [None]
